FAERS Safety Report 5777501-7 (Version None)
Quarter: 2008Q2

REPORT INFORMATION
  Report Type: 
  Country: None (occurrence: None)
  Receive Date: 20080616
  Receipt Date: 20080610
  Transmission Date: 20081010
  Serious: Yes (Other)
  Sender: FDA-Public Use
  Company Number: 2008SP002925

PATIENT
  Age: 52 Year
  Sex: Female

DRUGS (11)
  1. PEG-INTRON [Suspect]
     Indication: HEPATITIS C
     Dosage: 80 MCG;QW;SC
     Route: 058
     Dates: start: 20070413, end: 20080313
  2. REBETOL [Suspect]
     Indication: HEPATITIS C
     Dosage: 400 MG;BID;PO
     Route: 048
     Dates: start: 20070413, end: 20080320
  3. REBETOL [Suspect]
  4. HCV-796 [Suspect]
     Indication: HEPATITIS C
     Dosage: 500 MG;BID;PO
     Route: 048
     Dates: start: 20070413, end: 20070809
  5. GLYBURIDE [Concomitant]
  6. METFORMIN HCL [Concomitant]
  7. TYLENOL EXTRA STRENGTH [Concomitant]
  8. TIMOLOL MALEATE [Concomitant]
  9. LUMIGAN [Concomitant]
  10. ALPHAGAN [Concomitant]
  11. PIROXICAM [Concomitant]

REACTIONS (2)
  - ALANINE AMINOTRANSFERASE INCREASED [None]
  - ASPARTATE AMINOTRANSFERASE INCREASED [None]
